FAERS Safety Report 22169610 (Version 2)
Quarter: 2023Q2

REPORT INFORMATION
  Report Type: Report from Study
  Country: US (occurrence: US)
  Receive Date: 20230404
  Receipt Date: 20230421
  Transmission Date: 20230721
  Serious: Yes (Hospitalization)
  Sender: FDA-Public Use
  Company Number: US-NOVOPROD-1043796

PATIENT
  Age: 56 Year
  Sex: Female
  Weight: 103 kg

DRUGS (3)
  1. SEMAGLUTIDE [Suspect]
     Active Substance: SEMAGLUTIDE
     Indication: Non-alcoholic steatohepatitis
     Dosage: 0.5,MG,ONCE PER WEEK
     Route: 058
     Dates: start: 20221006
  2. CAGRILINTIDE [Suspect]
     Active Substance: CAGRILINTIDE
     Indication: Non-alcoholic steatohepatitis
     Dosage: 0.5,MG,ONCE PER WEEK
     Route: 058
     Dates: start: 20221006
  3. ISOVUE 370 [Concomitant]
     Active Substance: IOPAMIDOL
     Indication: Scan with contrast
     Dosage: 75.0,CC,ONCE
     Dates: start: 20230305, end: 20230305

REACTIONS (1)
  - Gastroenteritis [Recovered/Resolved]

NARRATIVE: CASE EVENT DATE: 20230305
